FAERS Safety Report 13365813 (Version 1)
Quarter: 2017Q1

REPORT INFORMATION
  Report Type: Spontaneous
  Country: US (occurrence: US)
  Receive Date: 20170323
  Receipt Date: 20170323
  Transmission Date: 20170429
  Serious: No
  Sender: FDA-Public Use
  Company Number: US-ALLERGAN-2016-002546

PATIENT
  Age: 58 Year
  Sex: Female

DRUGS (3)
  1. VITAMIN D [Concomitant]
     Active Substance: CHOLECALCIFEROL
     Dosage: UNK, UNKNOWN
     Route: 065
  2. ESTRACE [Suspect]
     Active Substance: ESTRADIOL
     Dosage: 3 TIMES WEEKLY
     Route: 067
     Dates: start: 2012, end: 2016
  3. ESTRACE [Suspect]
     Active Substance: ESTRADIOL
     Dosage: 3 TIMES WEEKLY
     Route: 067
     Dates: start: 2016

REACTIONS (3)
  - Vulvovaginal burning sensation [Recovered/Resolved]
  - Drug hypersensitivity [Recovered/Resolved]
  - Vulvovaginal pruritus [Recovered/Resolved]

NARRATIVE: CASE EVENT DATE: 201609
